FAERS Safety Report 6663622-3 (Version None)
Quarter: 2010Q2

REPORT INFORMATION
  Report Type: 
  Country: None (occurrence: None)
  Receive Date: 20100401
  Receipt Date: 20100322
  Transmission Date: 20101027
  Serious: Yes (Hospitalization)
  Sender: FDA-Public Use
  Company Number: DE-BRISTOL-MYERS SQUIBB COMPANY-15042930

PATIENT
  Age: 57 Year
  Sex: Male
  Weight: 81 kg

DRUGS (6)
  1. CETUXIMAB [Suspect]
     Indication: NON-SMALL CELL LUNG CANCER
     Dosage: DAY 1 OF THE CYCLE;250MG/M2 WEEKLY; ONGOING
     Route: 042
     Dates: start: 20100311
  2. CISPLATIN [Suspect]
     Indication: NON-SMALL CELL LUNG CANCER
     Dosage: DAY 1 EVERY 21 DAYS; ONGOING
     Route: 042
     Dates: start: 20100311
  3. PEMETREXED DISODIUM [Suspect]
     Indication: NON-SMALL CELL LUNG CANCER
     Dosage: DAY 1 EVERY 21 DAYS; ONGOING
     Route: 042
     Dates: start: 20100311
  4. FOLIC ACID [Concomitant]
     Dosage: ONGOING
     Dates: start: 20100303
  5. VITAMIN B-12 [Concomitant]
     Dosage: ONGOING
     Dates: start: 20100303
  6. CORTICOSTEROID [Concomitant]
     Dosage: ONGOING
     Dates: start: 20100303

REACTIONS (1)
  - DIVERTICULITIS [None]
